FAERS Safety Report 17566879 (Version 1)
Quarter: 2020Q1

REPORT INFORMATION
  Report Type: Report from Study
  Country: US (occurrence: US)
  Receive Date: 20200320
  Receipt Date: 20200320
  Transmission Date: 20200409
  Serious: Yes (Congenital Anomaly)
  Sender: FDA-Public Use
  Company Number: US-TEVA-2019-US-1013751

PATIENT
  Sex: Male

DRUGS (30)
  1. ZYRTEC GENERIC [Suspect]
     Active Substance: CETIRIZINE HYDROCHLORIDE
     Dosage: 10 MILLIGRAM DAILY;
     Route: 064
     Dates: start: 20180404
  2. FLUOXETINE [Suspect]
     Active Substance: FLUOXETINE HYDROCHLORIDE
     Indication: AFFECTIVE DISORDER
     Dosage: 300 MILLIGRAM DAILY;
     Route: 064
     Dates: start: 20180213, end: 20190509
  3. BUSPIRONE [Suspect]
     Active Substance: BUSPIRONE HYDROCHLORIDE
     Indication: ANXIETY
     Dosage: 2-3 TIMES, DAILY
     Route: 064
     Dates: start: 20141201
  4. VITAMIN B6 [Concomitant]
     Active Substance: PYRIDOXINE HYDROCHLORIDE
     Indication: NAUSEA
     Dosage: AS NEEDED
     Route: 064
     Dates: start: 201901
  5. XYREM [Suspect]
     Active Substance: SODIUM OXYBATE
     Indication: NARCOLEPSY
  6. ZYRTEC GENERIC [Suspect]
     Active Substance: CETIRIZINE HYDROCHLORIDE
     Indication: HYPERSENSITIVITY
     Dosage: 10 MILLIGRAM DAILY;
     Route: 064
     Dates: start: 2014
  7. IRON SUPPLEMENT [Concomitant]
     Active Substance: IRON
     Indication: ANAEMIA
     Dosage: 165 MILLIGRAM DAILY;
     Dates: start: 2015
  8. BUPROPION. [Suspect]
     Active Substance: BUPROPION
     Indication: DEPRESSION
     Dosage: 150 MILLIGRAM DAILY;
     Route: 064
     Dates: start: 20100113, end: 20190509
  9. XYREM [Suspect]
     Active Substance: SODIUM OXYBATE
     Indication: CATAPLEXY
     Dosage: 9 GRAM DAILY; 2XNIGHTY
     Route: 064
     Dates: start: 20151209
  10. WELLBUTRIN [Suspect]
     Active Substance: BUPROPION HYDROCHLORIDE
     Indication: DEPRESSION
     Dosage: 150 MILLIGRAM DAILY;
     Route: 064
     Dates: start: 201801
  11. LABETALOL [Suspect]
     Active Substance: LABETALOL\LABETALOL HYDROCHLORIDE
     Indication: HYPERTENSION
     Dosage: 200 MILLIGRAM DAILY;
     Route: 064
     Dates: start: 20180124
  12. ASPIRIN. [Suspect]
     Active Substance: ASPIRIN
     Indication: PROPHYLAXIS
     Dosage: 81 MILLIGRAM DAILY;
     Route: 064
     Dates: start: 20190201
  13. ADAPALENE 0.1% TOPICAL GEL [Suspect]
     Active Substance: ADAPALENE
     Indication: ACNE
     Route: 064
     Dates: start: 20181118
  14. VITAMIN D3 [Concomitant]
     Active Substance: CHOLECALCIFEROL
     Indication: VITAMIN D DEFICIENCY
     Dosage: 2000 IU (INTERNATIONAL UNIT) DAILY;
     Dates: start: 2017
  15. FERROUS SULFATE. [Concomitant]
     Active Substance: FERROUS SULFATE
     Indication: SUPPLEMENTATION THERAPY
     Route: 065
     Dates: start: 2015
  16. PROVIGIL [Suspect]
     Active Substance: MODAFINIL
     Indication: NARCOLEPSY
     Dosage: 400 MILLIGRAM DAILY;
     Route: 064
     Dates: start: 20130226
  17. PROVIGIL [Suspect]
     Active Substance: MODAFINIL
     Indication: CATAPLEXY
  18. ASPIRIN. [Suspect]
     Active Substance: ASPIRIN
     Indication: HYPERTENSION
     Dosage: 81 MILLIGRAM DAILY;
     Route: 064
     Dates: start: 20190131
  19. BUSPAR [Suspect]
     Active Substance: BUSPIRONE HYDROCHLORIDE
     Indication: ANXIETY
     Dosage: DAY2-3 TIMES DAILY
     Route: 064
     Dates: start: 201511
  20. PRENATAL VITAMINS [Concomitant]
     Active Substance: VITAMINS
     Indication: PREGNANCY
     Dates: start: 20180124
  21. VITAMIN D3 [Concomitant]
     Active Substance: CHOLECALCIFEROL
     Indication: SUPPLEMENTATION THERAPY
  22. CYMBALTA [Concomitant]
     Active Substance: DULOXETINE HYDROCHLORIDE
     Indication: DEPRESSION
     Dosage: 80 MILLIGRAM DAILY;
     Dates: start: 2007, end: 201801
  23. TUMS [Concomitant]
     Active Substance: CALCIUM CARBONATE
     Indication: DYSPEPSIA
     Dosage: 1-2 TABLETS DAILY
     Dates: start: 201901
  24. FISH OIL/DHA [Concomitant]
     Indication: SUPPLEMENTATION THERAPY
     Dosage: 100 MILLIGRAM DAILY;
     Route: 065
  25. FLUOXETINE [Suspect]
     Active Substance: FLUOXETINE HYDROCHLORIDE
     Indication: DEPRESSION
     Dosage: 40 MILLIGRAM DAILY;
     Route: 064
     Dates: start: 201801
  26. WELLBUTRIN [Suspect]
     Active Substance: BUPROPION HYDROCHLORIDE
     Indication: AFFECTIVE DISORDER
  27. FOLIC ACID. [Concomitant]
     Active Substance: FOLIC ACID
     Indication: SUPPLEMENTATION THERAPY
     Dosage: 1 GRAM DAILY;
     Route: 065
  28. CLINDAMYCIN 1% TOPICAL SOLUTION [Suspect]
     Active Substance: CLINDAMYCIN
     Indication: ACNE
     Route: 064
     Dates: start: 20180924
  29. TYLENOL [Suspect]
     Active Substance: ACETAMINOPHEN
     Indication: HEADACHE
     Dosage: PRN, EVERY 6 HOURS
     Route: 064
     Dates: start: 20180606
  30. CYMBALTA [Concomitant]
     Active Substance: DULOXETINE HYDROCHLORIDE
     Indication: AFFECTIVE DISORDER

REACTIONS (2)
  - Hypotonia neonatal [Unknown]
  - Foetal exposure during pregnancy [Unknown]

NARRATIVE: CASE EVENT DATE: 20190901
